FAERS Safety Report 10551205 (Version 1)
Quarter: 2014Q4

REPORT INFORMATION
  Report Type: Spontaneous
  Country: US (occurrence: None)
  Receive Date: 20141028
  Receipt Date: 20141028
  Transmission Date: 20150529
  Serious: Yes (Other)
  Sender: FDA-Public Use
  Company Number: None

PATIENT
  Age: 81 Year
  Sex: Female
  Weight: 69.4 kg

DRUGS (7)
  1. LATANOPROST 0.005 % OPHTHALMIC SOLUTION [Suspect]
     Active Substance: LATANOPROST
     Indication: GLAUCOMA
     Dosage: 2.50 NO REFILLS?1 DROP?DROP IN EYE AT BEDTIME IN LEFT EYE ?DROPS IN LEFT EUE FOR 10 DAYS
     Route: 047
     Dates: start: 20140506, end: 20140522
  2. D [Concomitant]
  3. BIOTIN [Concomitant]
     Active Substance: BIOTIN
  4. OCUVITE [Concomitant]
     Active Substance: VITAMINS
  5. GLUCOSAMINIL [Concomitant]
  6. VITAMIN C [Concomitant]
     Active Substance: ASCORBIC ACID
  7. CALCIUM [Concomitant]
     Active Substance: CALCIUM

REACTIONS (4)
  - Muscle spasms [None]
  - Abasia [None]
  - Weight decreased [None]
  - Back pain [None]

NARRATIVE: CASE EVENT DATE: 20140512
